FAERS Safety Report 11563840 (Version 1)
Quarter: 2015Q3

REPORT INFORMATION
  Report Type: Spontaneous
  Country: US (occurrence: US)
  Receive Date: 20150916
  Receipt Date: 20150916
  Transmission Date: 20151125
  Serious: No
  Sender: FDA-Public Use
  Company Number: US-ELI_LILLY_AND_COMPANY-US200902004151

PATIENT
  Sex: Female

DRUGS (2)
  1. BYETTA [Concomitant]
     Active Substance: EXENATIDE
     Dosage: 10 MG, UNK
  2. FORTEO [Suspect]
     Active Substance: TERIPARATIDE
     Dates: start: 200901

REACTIONS (2)
  - Headache [Unknown]
  - Blood glucose fluctuation [Not Recovered/Not Resolved]

NARRATIVE: CASE EVENT DATE: 200901
